FAERS Safety Report 6750601-0 (Version None)
Quarter: 2010Q2

REPORT INFORMATION
  Report Type: 
  Country: None (occurrence: None)
  Receive Date: 20100528
  Receipt Date: 20100528
  Transmission Date: 20101027
  Serious: Yes (Hospitalization)
  Sender: FDA-Public Use
  Company Number: None

PATIENT
  Sex: Female
  Weight: 63.9572 kg

DRUGS (1)
  1. SOLARAZE [Suspect]
     Indication: ACTINIC KERATOSIS
     Dosage: SMALL AMOUNT TWICE DAILY TOPICAL TO FACE
     Route: 061

REACTIONS (2)
  - CARDIAC DISORDER [None]
  - HYPERTENSION [None]
